FAERS Safety Report 12064082 (Version 1)
Quarter: 2016Q1

REPORT INFORMATION
  Report Type: Report from Study
  Country: US (occurrence: US)
  Receive Date: 20160210
  Receipt Date: 20160210
  Transmission Date: 20160526
  Serious: No
  Sender: FDA-Public Use
  Company Number: US-ABBVIE-15P-163-1515549-00

PATIENT
  Age: 52 Year
  Sex: Male

DRUGS (1)
  1. HUMIRA [Suspect]
     Active Substance: ADALIMUMAB
     Indication: RHEUMATOID ARTHRITIS
     Route: 058
     Dates: start: 20151201

REACTIONS (7)
  - Injection site erythema [Recovered/Resolved]
  - Diarrhoea [Unknown]
  - Agoraphobia [Recovered/Resolved]
  - Contusion [Unknown]
  - Arthralgia [Unknown]
  - Activities of daily living impaired [Unknown]
  - Cough [Unknown]

NARRATIVE: CASE EVENT DATE: 2015
